FAERS Safety Report 9192114 (Version 1)
Quarter: 2013Q1

REPORT INFORMATION
  Report Type: Spontaneous
  Country: DE (occurrence: None)
  Receive Date: 20130325
  Receipt Date: 20130325
  Transmission Date: 20140127
  Serious: Yes (Other)
  Sender: FDA-Public Use
  Company Number: IPC201303-000102

PATIENT
  Sex: Female

DRUGS (1)
  1. METFORMIN HCL [Suspect]
     Indication: DIABETES MELLITUS
     Dosage: TWO TABLETS A DAY (STRENGTH: 850 MG)
     Dates: start: 201302

REACTIONS (2)
  - Lactose intolerance [None]
  - Blood creatinine increased [None]
